FAERS Safety Report 24800934 (Version 1)
Quarter: 2025Q1

REPORT INFORMATION
  Report Type: Spontaneous
  Country: US (occurrence: None)
  Receive Date: 20250102
  Receipt Date: 20250102
  Transmission Date: 20250408
  Serious: Yes (Other)
  Sender: FDA-CTU
  Company Number: None

PATIENT
  Age: 76 Year
  Sex: Female

DRUGS (1)
  1. REVLIMID [Suspect]
     Active Substance: LENALIDOMIDE
     Indication: Myelodysplastic syndrome
     Dosage: FREQUENCY : DAILY;?
     Route: 048
     Dates: start: 20170216, end: 202302

REACTIONS (5)
  - Cytopenia [None]
  - Haemoglobin decreased [None]
  - White blood cell count decreased [None]
  - Therapy interrupted [None]
  - Off label use [None]

NARRATIVE: CASE EVENT DATE: 20230207
